FAERS Safety Report 21155788 (Version 1)
Quarter: 2022Q3

REPORT INFORMATION
  Report Type: Spontaneous
  Country: JP (occurrence: JP)
  Receive Date: 20220801
  Receipt Date: 20220801
  Transmission Date: 20221027
  Serious: Yes (Other)
  Sender: FDA-Public Use
  Company Number: JP-BAYER-2022A054552

PATIENT
  Age: 85 Year
  Sex: Female

DRUGS (5)
  1. EYLEA [Suspect]
     Active Substance: AFLIBERCEPT
     Indication: Retinal vein occlusion
     Dosage: 0.05 ML, ONCE, SOLUTION FOR INJECTION
     Route: 031
     Dates: start: 20180301, end: 20180301
  2. EYLEA [Suspect]
     Active Substance: AFLIBERCEPT
     Dosage: 0.05 ML, ONCE, SOLUTION FOR INJECTION
     Route: 031
     Dates: start: 20180405, end: 20180405
  3. EYLEA [Suspect]
     Active Substance: AFLIBERCEPT
     Dosage: 0.05 ML, ONCE, SOLUTION FOR INJECTION
     Route: 031
     Dates: start: 20180607, end: 20180607
  4. EYLEA [Suspect]
     Active Substance: AFLIBERCEPT
     Dosage: 0.05 ML, ONCE, SOLUTION FOR INJECTION
     Route: 031
     Dates: start: 20180913, end: 20180913
  5. EYLEA [Suspect]
     Active Substance: AFLIBERCEPT
     Dosage: 0.05 ML, ONCE, SOLUTION FOR INJECTION
     Route: 031
     Dates: start: 20181213, end: 20181213

REACTIONS (3)
  - Subarachnoid haemorrhage [Unknown]
  - Stertor [Unknown]
  - Cerebral infarction [Unknown]

NARRATIVE: CASE EVENT DATE: 20190802
